FAERS Safety Report 16534224 (Version 1)
Quarter: 2019Q3

REPORT INFORMATION
  Report Type: Spontaneous
  Country: US (occurrence: US)
  Receive Date: 20190705
  Receipt Date: 20190705
  Transmission Date: 20191004
  Serious: Yes (Other)
  Sender: FDA-Public Use
  Company Number: US-009507513-1906USA010342

PATIENT
  Age: 80 Year
  Sex: Male

DRUGS (2)
  1. ASCORBIC ACID. [Concomitant]
     Active Substance: ASCORBIC ACID
  2. TICE BCG [Suspect]
     Active Substance: BACILLUS CALMETTE-GUERIN SUBSTRAIN TICE LIVE ANTIGEN
     Indication: BLADDER CANCER
     Dosage: UNK
     Route: 043
     Dates: start: 201812

REACTIONS (3)
  - Bladder cancer [Unknown]
  - Product availability issue [Unknown]
  - Procedural pain [Unknown]

NARRATIVE: CASE EVENT DATE: 2019
